FAERS Safety Report 18399411 (Version 1)
Quarter: 2020Q4

REPORT INFORMATION
  Report Type: Spontaneous
  Country: US (occurrence: US)
  Receive Date: 20201019
  Receipt Date: 20201019
  Transmission Date: 20210114
  Serious: No
  Sender: FDA-Public Use
  Company Number: US-LUNDBECK-DKLU3021854

PATIENT
  Age: 17 Year
  Sex: Male

DRUGS (7)
  1. SABRIL [Suspect]
     Active Substance: VIGABATRIN
     Indication: STATUS EPILEPTICUS
  2. EPIDIOLEX [Concomitant]
     Active Substance: CANNABIDIOL
     Route: 048
     Dates: start: 202003
  3. EPIDIOLEX [Concomitant]
     Active Substance: CANNABIDIOL
     Indication: PRODUCT USED FOR UNKNOWN INDICATION
     Route: 048
  4. EPIDIOLEX [Concomitant]
     Active Substance: CANNABIDIOL
     Route: 048
     Dates: start: 202003
  5. EPIDIOLEX [Concomitant]
     Active Substance: CANNABIDIOL
     Route: 048
  6. SABRIL [Suspect]
     Active Substance: VIGABATRIN
     Indication: LENNOX-GASTAUT SYNDROME
     Route: 048
     Dates: start: 20141210
  7. SABRIL [Suspect]
     Active Substance: VIGABATRIN
     Indication: EPILEPSY
     Route: 048
     Dates: start: 20141210

REACTIONS (2)
  - Head banging [Recovering/Resolving]
  - Irritability [Recovering/Resolving]
